FAERS Safety Report 14855452 (Version 1)
Quarter: 2018Q2

REPORT INFORMATION
  Report Type: Spontaneous
  Country: US (occurrence: US)
  Receive Date: 20180507
  Receipt Date: 20180507
  Transmission Date: 20180711
  Serious: No
  Sender: FDA-Public Use
  Company Number: US-ROCHE-1977468

PATIENT
  Sex: Male

DRUGS (6)
  1. NAC (ACETYLCYSTEINE) [Concomitant]
  2. NITROGLYCERIN. [Concomitant]
     Active Substance: NITROGLYCERIN
  3. VITAMIN A [Concomitant]
     Active Substance: VITAMIN A
  4. ESBRIET [Suspect]
     Active Substance: PIRFENIDONE
     Indication: PULMONARY FIBROSIS
     Route: 048
     Dates: start: 20170718
  5. TRAVATAN Z [Concomitant]
     Active Substance: TRAVOPROST
  6. TIMOLOL MALEATE. [Concomitant]
     Active Substance: TIMOLOL MALEATE

REACTIONS (3)
  - Gastric disorder [Not Recovered/Not Resolved]
  - Malaise [Not Recovered/Not Resolved]
  - Decreased appetite [Not Recovered/Not Resolved]
